FAERS Safety Report 22002079 (Version 1)
Quarter: 2023Q1

REPORT INFORMATION
  Report Type: Spontaneous
  Country: BR (occurrence: BR)
  Receive Date: 20230216
  Receipt Date: 20230216
  Transmission Date: 20230418
  Serious: Yes (Other)
  Sender: FDA-Public Use
  Company Number: BR-CELLTRION INC.-2023BR003244

PATIENT

DRUGS (3)
  1. INFLIXIMAB [Suspect]
     Active Substance: INFLIXIMAB
     Indication: Takayasu^s arteritis
     Dosage: 3 AMPOULES ON DAY 0, 3 AMPOULES AFTER 2 WEEKS, THEN 3 AMPOULES EVERY 2 MONTHS
     Route: 042
  2. PREDNISONE [Concomitant]
     Active Substance: PREDNISONE
     Indication: Takayasu^s arteritis
     Dosage: 2 PILLS PER DAY
     Route: 048
     Dates: start: 2020
  3. AZATHIOPRINE [Concomitant]
     Active Substance: AZATHIOPRINE
     Indication: Takayasu^s arteritis
     Dosage: 2 PILLS PER DAY
     Route: 048
     Dates: start: 2020

REACTIONS (2)
  - Takayasu^s arteritis [Unknown]
  - Off label use [Unknown]
